FAERS Safety Report 8511577-9 (Version None)
Quarter: 2012Q3

REPORT INFORMATION
  Report Type: 
  Country: None (occurrence: None)
  Receive Date: 20120716
  Receipt Date: 20120710
  Transmission Date: 20120928
  Serious: Yes (Hospitalization)
  Sender: FDA-Public Use
  Company Number: FR-009507513-1207FRA000245

PATIENT

DRUGS (16)
  1. BOCEPREVIR [Suspect]
     Indication: HEPATITIS C
     Dosage: 2400 MG, QD
     Dates: start: 20120611, end: 20120706
  2. REBETOL [Suspect]
     Indication: HEPATITIS C
     Dosage: 1200 MG, QD
     Dates: start: 20120509, end: 20120620
  3. REBETOL [Suspect]
     Dosage: 800 UNK, UNK
     Dates: start: 20120620, end: 20120706
  4. LACTULOSE [Concomitant]
     Indication: ENCEPHALOPATHY
     Dosage: 150 MG, UNK
  5. MOTILIUM [Concomitant]
     Indication: OESOPHAGEAL DISORDER
     Dosage: 20 MG, UNK
  6. VIRAFERONPEG [Suspect]
     Dosage: UNK
  7. PROPRANOLOL HCL [Concomitant]
     Indication: PORTAL HYPERTENSION
     Dosage: 160 MG, QD
  8. VIRAFERONPEG [Suspect]
     Dosage: 1 MICROGRAM PER KILOGRAM, UNK
     Dates: start: 20120618, end: 20120706
  9. SPASFON [Concomitant]
     Indication: PAIN
     Dosage: 4 DF, UNK
  10. VIRAFERONPEG [Suspect]
     Indication: HEPATITIS C
     Dosage: 150 MICROGRAM, QW
     Dates: start: 20120509, end: 20120618
  11. SPIRONOLACTONE [Concomitant]
     Indication: OEDEMA
     Dosage: 75 MG, UNK
  12. LOVENOX [Concomitant]
     Indication: PROPHYLAXIS
     Dosage: 0.4 ML, UNK
  13. MAGNE B6 TABLETS [Concomitant]
     Indication: MAGNESIUM DEFICIENCY
     Dosage: 2 DF, UNK
  14. RIFAXIMIN [Concomitant]
     Indication: INFECTION
     Dosage: 2 DF, UNK
  15. FUROSEMIDE [Concomitant]
     Indication: OEDEMA
     Dosage: 20 MG, UNK
     Dates: start: 20120529
  16. OMEPRAZOLE [Concomitant]
     Indication: OESOPHAGEAL DISORDER

REACTIONS (1)
  - SEPTIC SHOCK [None]
